FAERS Safety Report 7200493-0 (Version None)
Quarter: 2010Q4

REPORT INFORMATION
  Report Type: 
  Country: None (occurrence: None)
  Receive Date: 20101228
  Receipt Date: 20101217
  Transmission Date: 20110411
  Serious: Yes (Life-Threatening, Other)
  Sender: FDA-Public Use
  Company Number: FR-PFIZER INC-2010174178

PATIENT
  Age: 85 Year
  Sex: Male

DRUGS (7)
  1. SOLU-MEDROL [Suspect]
     Dosage: 120 MG, SINGLE
     Route: 042
     Dates: start: 20101103, end: 20101103
  2. PHENERGAN [Suspect]
     Dosage: 1 DF, SINGLE
     Route: 042
     Dates: start: 20101103, end: 20101103
  3. RAMIPRIL [Concomitant]
     Dosage: 10 MG, 1X/DAY
     Route: 048
  4. PRAVASTATIN SODIUM [Concomitant]
     Dosage: 20 MG, 1X/DAY
     Route: 048
  5. PLAVIX [Concomitant]
     Dosage: 75 MG, 1X/DAY
     Route: 048
  6. CARDENSIEL [Concomitant]
     Route: 048
  7. RIVOTRIL [Concomitant]
     Dosage: 1 MG, SINGLE
     Route: 042
     Dates: start: 20101103, end: 20101103

REACTIONS (8)
  - AGITATION [None]
  - APNOEA [None]
  - CIRCULATORY COLLAPSE [None]
  - CONFUSIONAL STATE [None]
  - DYSKINESIA [None]
  - HYPERTENSION [None]
  - HYPOTENSION [None]
  - SPEECH DISORDER [None]
